FAERS Safety Report 6823425-3 (Version None)
Quarter: 2010Q3

REPORT INFORMATION
  Report Type: 
  Country: None (occurrence: None)
  Receive Date: 20100708
  Receipt Date: 20100623
  Transmission Date: 20110219
  Serious: Yes (Death, Hospitalization, Other)
  Sender: FDA-Public Use
  Company Number: PHEH2006US08865

PATIENT
  Sex: Female
  Weight: 57.142 kg

DRUGS (46)
  1. ZOMETA [Suspect]
     Indication: MULTIPLE MYELOMA
     Dosage: 4 MG, QMO
     Route: 042
     Dates: start: 20031001
  2. PRILOSEC [Concomitant]
     Indication: DYSPEPSIA
     Dosage: 20 MG, QD
     Dates: start: 19971205
  3. PRILOSEC [Concomitant]
     Dosage: 20 MG, BID
  4. PREDNISONE [Concomitant]
     Dosage: 50 MG A DAY
     Dates: start: 20020921
  5. PREDNISONE [Concomitant]
     Dosage: 20 MG, BID
  6. PREDNISONE [Concomitant]
     Dosage: 100 MG A DAY
  7. PROTONIX [Concomitant]
     Dosage: 40 DAILY
  8. MICRO-K [Concomitant]
     Dosage: 10 TWICE A DAY
  9. COSOPT [Concomitant]
  10. SODIUM CHLORIDE [Concomitant]
  11. XANAX [Concomitant]
  12. MYLANTA [Concomitant]
     Dosage: AS NEEDED
  13. TYLENOL [Concomitant]
     Indication: PYREXIA
     Dosage: 500 MG, Q4H
     Dates: start: 19990928
  14. TYLENOL [Concomitant]
     Dosage: 2 TABLETS EVERY 6 HOURS AS NEEDED
  15. AMBIEN [Concomitant]
  16. SENOKOT [Concomitant]
     Dosage: 2 AT BED TIME
  17. MAGNESIUM OXIDE [Concomitant]
  18. K-DUR [Concomitant]
  19. MIRALAX [Concomitant]
  20. CIPRO [Concomitant]
     Dosage: 500 MG, BID
  21. CIPRO [Concomitant]
     Dosage: 250 MG, BID
  22. ALKERAN [Concomitant]
     Dosage: 12 MG A DAY
  23. ALKERAN [Concomitant]
     Dosage: 10 MG A DAY
  24. PROCRIT [Concomitant]
     Indication: ANAEMIA
     Dosage: 10,000 UNITS
     Route: 058
  25. PROCRIT [Concomitant]
     Dosage: 20,000 UNITS WEEKLY
  26. PROCRIT [Concomitant]
     Dosage: 40,000 UNITS WEEKLY
  27. PROCRIT [Concomitant]
     Dosage: 30 UNITS, TWICE A MONTH
     Dates: start: 20031001
  28. CENTRUM [Concomitant]
     Dosage: UNK
  29. SILVER [Concomitant]
  30. OSTEO BI-FLEX [Concomitant]
  31. MILK OF MAGNESIA TAB [Concomitant]
     Dosage: 45 CC AS NEEDED
  32. LASIX [Concomitant]
     Dosage: 20 MG, UNK
  33. RESTORIL [Concomitant]
     Dosage: 15 MG, QHS AS NEEDED
     Dates: start: 19971205
  34. CARAFATE [Concomitant]
     Dosage: 1 G, UNK
  35. FLAGYL [Concomitant]
     Dosage: UNK
  36. ARANESP [Concomitant]
     Dosage: 200 MCG EVERY OTHER WEEK
  37. MELPHALAN HYDROCHLORIDE [Concomitant]
  38. LAMISIL [Concomitant]
     Dosage: 1 TABLET (250 MG) DAILY WITH FOOD
  39. SEPTRA DS [Concomitant]
     Dosage: UNK
     Dates: start: 19991123, end: 20000120
  40. PHENAZOPYRIDINE HCL TAB [Concomitant]
  41. EVISTA [Concomitant]
     Indication: OSTEOPOROSIS
     Dosage: UNK
  42. NOROXIN [Concomitant]
     Dosage: 400 MG, BID
     Dates: start: 20010330, end: 20010404
  43. CLARITIN-D [Concomitant]
     Dosage: UNK
     Dates: start: 20010330, end: 20010404
  44. CECLOR CD [Concomitant]
     Dosage: 500 MG, BID
     Dates: start: 19990928
  45. TUSSIONEX [Concomitant]
  46. AMOXIL ^AYERST LAB^ [Concomitant]

REACTIONS (60)
  - ABDOMINAL PAIN UPPER [None]
  - ACTINOMYCOSIS [None]
  - ANAEMIA OF CHRONIC DISEASE [None]
  - ANXIETY [None]
  - ATELECTASIS [None]
  - BACTERIAL TEST POSITIVE [None]
  - BIOPSY BONE ABNORMAL [None]
  - BLOOD URINE PRESENT [None]
  - BONE DEBRIDEMENT [None]
  - BONE DISORDER [None]
  - BONE PAIN [None]
  - BUNION [None]
  - CEREBROVASCULAR ACCIDENT [None]
  - CHEST PAIN [None]
  - CHROMATURIA [None]
  - CONSTIPATION [None]
  - DECREASED APPETITE [None]
  - DIARRHOEA [None]
  - DIVERTICULUM INTESTINAL [None]
  - DYSPNOEA [None]
  - DYSURIA [None]
  - EPISTAXIS [None]
  - FATIGUE [None]
  - FOOT DEFORMITY [None]
  - GALLBLADDER DISORDER [None]
  - GASTROENTERITIS [None]
  - GASTROINTESTINAL HAEMORRHAGE [None]
  - GINGIVAL BLEEDING [None]
  - HAEMORRHAGE [None]
  - HEPATIC CYST [None]
  - HIATUS HERNIA [None]
  - HYPOAESTHESIA [None]
  - HYPOKALAEMIA [None]
  - IMPAIRED HEALING [None]
  - INJURY [None]
  - LIPOMA [None]
  - MALAISE [None]
  - MASS [None]
  - MOUTH HAEMORRHAGE [None]
  - MOUTH ULCERATION [None]
  - MULTIPLE MYELOMA [None]
  - MUSCULAR WEAKNESS [None]
  - NAUSEA [None]
  - NEURITIS [None]
  - OESOPHAGEAL DISORDER [None]
  - ONYCHOMYCOSIS [None]
  - OSTEONECROSIS OF JAW [None]
  - OSTEOPENIA [None]
  - PAIN [None]
  - PALLOR [None]
  - PARAESTHESIA [None]
  - PEPTIC ULCER [None]
  - SPINAL OSTEOARTHRITIS [None]
  - TACHYCARDIA [None]
  - THROMBOCYTOPENIA [None]
  - URINARY INCONTINENCE [None]
  - URINARY TRACT INFECTION [None]
  - UROSEPSIS [None]
  - VOMITING [None]
  - WEIGHT DECREASED [None]
